FAERS Safety Report 5494853-6 (Version None)
Quarter: 2007Q4

REPORT INFORMATION
  Report Type: 
  Country: None (occurrence: None)
  Receive Date: 20071024
  Receipt Date: 20071016
  Transmission Date: 20080405
  Serious: Yes (Other)
  Sender: FDA-Public Use
  Company Number: AU-GENENTECH-246503

PATIENT
  Sex: Female

DRUGS (13)
  1. FLUOROURACIL [Suspect]
     Indication: BREAST CANCER METASTATIC
     Dosage: UNK, Q3W
     Route: 042
     Dates: start: 20061221, end: 20070904
  2. BLINDED BEVACIZUMAB [Suspect]
     Indication: BREAST CANCER METASTATIC
     Dosage: UNK, Q3W
     Route: 042
     Dates: start: 20061221, end: 20070904
  3. BLINDED CAPECITABINE [Suspect]
     Indication: BREAST CANCER METASTATIC
     Dosage: UNK, Q3W
     Route: 042
     Dates: start: 20061221, end: 20070904
  4. CYCLOPHOSPHAMIDE [Suspect]
     Indication: BREAST CANCER METASTATIC
     Dosage: UNK, Q3W
     Route: 042
     Dates: start: 20061221, end: 20070904
  5. BLINDED DOCETAXEL [Suspect]
     Indication: BREAST CANCER METASTATIC
     Dosage: UNK, Q3W
     Route: 042
     Dates: start: 20061221, end: 20070904
  6. DOXORUBICIN HCL [Suspect]
     Indication: BREAST CANCER METASTATIC
     Dosage: UNK, Q3W
     Route: 042
     Dates: start: 20061221, end: 20070904
  7. EPIRUBICIN [Suspect]
     Indication: BREAST CANCER METASTATIC
     Dosage: UNK, Q3W
     Route: 042
     Dates: start: 20061221, end: 20070904
  8. BLINDED NO STUDY DRUG ADMINISTERED [Suspect]
     Indication: BREAST CANCER METASTATIC
     Dosage: UNK, Q3W
     Route: 042
     Dates: start: 20061221, end: 20070904
  9. BLINDED PACLITAXEL [Suspect]
     Indication: BREAST CANCER METASTATIC
     Dosage: UNK, Q3W
     Route: 042
     Dates: start: 20061221, end: 20070904
  10. BLINDED PLACEBO [Suspect]
     Indication: BREAST CANCER METASTATIC
     Dosage: UNK, Q3W
     Route: 042
     Dates: start: 20061221, end: 20070904
  11. CAPECITABINE [Suspect]
     Indication: BREAST CANCER METASTATIC
     Dosage: 2500 MG, D1-14/Q3W
     Dates: start: 20061221
  12. ZOLEDRONIC ACID [Concomitant]
     Indication: DRUG USE FOR UNKNOWN INDICATION
     Dosage: 4 MG, UNK
     Dates: start: 20060301, end: 20061101
  13. PERINDOPRIL ERBUMINE [Concomitant]
     Indication: DRUG USE FOR UNKNOWN INDICATION
     Dosage: 7.5 MG, QD
     Dates: start: 20070601

REACTIONS (1)
  - OSTEONECROSIS [None]
